FAERS Safety Report 6990743-8 (Version None)
Quarter: 2010Q3

REPORT INFORMATION
  Report Type: 
  Country: None (occurrence: None)
  Receive Date: 20100916
  Receipt Date: 20100728
  Transmission Date: 20110219
  Serious: Yes (Other)
  Sender: FDA-Public Use
  Company Number: JP-PFIZER INC-2010086267

PATIENT
  Age: 82 Year
  Sex: Female

DRUGS (2)
  1. LYRICA [Suspect]
     Indication: POST HERPETIC NEURALGIA
     Dosage: 150 MG/DAY
     Dates: start: 20100623
  2. LYRICA [Suspect]
     Dosage: 75 MG IN MORNING, 150MG IN EVENING

REACTIONS (2)
  - GROIN PAIN [None]
  - MOVEMENT DISORDER [None]
